FAERS Safety Report 8269591-7 (Version None)
Quarter: 2012Q2

REPORT INFORMATION
  Report Type: 
  Country: None (occurrence: None)
  Receive Date: 20120410
  Receipt Date: 20120402
  Transmission Date: 20120825
  Serious: Yes (Death, Hospitalization, Other)
  Sender: FDA-Public Use
  Company Number: US-AMGEN-USASP2012020898

PATIENT
  Age: 70 Year
  Sex: Male

DRUGS (1)
  1. ENBREL [Suspect]
     Indication: RHEUMATOID ARTHRITIS
     Dosage: UNK

REACTIONS (6)
  - DEATH [None]
  - DEMENTIA ALZHEIMER'S TYPE [None]
  - HALLUCINATION [None]
  - CONFUSIONAL STATE [None]
  - CARDIAC DISORDER [None]
  - LYMPHOMA [None]
